FAERS Safety Report 6035718-0 (Version None)
Quarter: 2009Q1

REPORT INFORMATION
  Report Type: 
  Country: None (occurrence: None)
  Receive Date: 20090112
  Receipt Date: 20090112
  Transmission Date: 20090719
  Serious: Yes (Other)
  Sender: FDA-Public Use
  Company Number: None

PATIENT
  Age: 58 Year
  Sex: Female
  Weight: 65.7716 kg

DRUGS (1)
  1. VOLTAREN [Suspect]
     Indication: OSTEOARTHRITIS
     Dosage: 2^ 4 TIMES A DAY TOP
     Route: 061
     Dates: start: 20081106, end: 20081201

REACTIONS (2)
  - CONDITION AGGRAVATED [None]
  - HYPERTENSION [None]
